FAERS Safety Report 16952874 (Version 1)
Quarter: 2019Q4

REPORT INFORMATION
  Report Type: Report from Study
  Country: US (occurrence: US)
  Receive Date: 20191023
  Receipt Date: 20191023
  Transmission Date: 20200122
  Serious: Yes (Death, Hospitalization)
  Sender: FDA-Public Use
  Company Number: US-ACTELION-A-NJ2019-197268

PATIENT
  Age: 65 Year
  Sex: Female

DRUGS (26)
  1. SILDENAFIL. [Concomitant]
     Active Substance: SILDENAFIL
  2. LEVOTHYROXINE. [Concomitant]
     Active Substance: LEVOTHYROXINE
  3. CLONIDIN [Concomitant]
     Active Substance: CLONIDINE
  4. PRAVASTATIN. [Concomitant]
     Active Substance: PRAVASTATIN
  5. HYDROMORPHONE [Concomitant]
     Active Substance: HYDROMORPHONE
  6. DOXAZOSIN [Concomitant]
     Active Substance: DOXAZOSIN MESYLATE
  7. ZOFRAN [Concomitant]
     Active Substance: ONDANSETRON HYDROCHLORIDE
  8. NEPHRO VITE RX [Concomitant]
     Active Substance: ASCORBIC ACID\BIOTIN\CALCIUM PANTOTHENATE\CYANOCOBALAMIN\FOLIC ACID\NIACINAMIDE\PYRIDOXINE HYDROCHLORIDE\RIBOFLAVIN\THIAMINE MONONITRATE
  9. CLONIDINE. [Concomitant]
     Active Substance: CLONIDINE
  10. VOLTAREN [Concomitant]
     Active Substance: DICLOFENAC SODIUM
  11. OPSUMIT [Suspect]
     Active Substance: MACITENTAN
     Indication: PULMONARY ARTERIAL HYPERTENSION
     Dosage: 10 MG, QD
     Route: 048
     Dates: start: 201703, end: 201909
  12. PREDNISONE. [Concomitant]
     Active Substance: PREDNISONE
  13. ALLOPURINOL. [Concomitant]
     Active Substance: ALLOPURINOL
  14. KETAMIN [Concomitant]
     Active Substance: KETAMINE
  15. TRAMADOL. [Concomitant]
     Active Substance: TRAMADOL
  16. SEVELAMER [Concomitant]
     Active Substance: SEVELAMER
  17. LIDOC [Concomitant]
     Active Substance: LIDOCAINE
  18. CELLCEPT [Concomitant]
     Active Substance: MYCOPHENOLATE MOFETIL\MYCOPHENOLATE MOFETIL HYDROCHLORIDE
  19. OMEPRAZOLE. [Concomitant]
     Active Substance: OMEPRAZOLE
  20. LIOTHYRONINE [Concomitant]
     Active Substance: LIOTHYRONINE
  21. GABAPENTIN. [Concomitant]
     Active Substance: GABAPENTIN
  22. TACROLIMUS. [Concomitant]
     Active Substance: TACROLIMUS
  23. CALCITRIOL. [Concomitant]
     Active Substance: CALCITRIOL
  24. NIFEDIPINE. [Concomitant]
     Active Substance: NIFEDIPINE
  25. BETAMETHASONE DIPROPIONATE. [Concomitant]
     Active Substance: BETAMETHASONE DIPROPIONATE
  26. EMLA [Concomitant]
     Active Substance: LIDOCAINE\PRILOCAINE

REACTIONS (2)
  - Cerebrovascular accident [Fatal]
  - Loss of consciousness [Fatal]

NARRATIVE: CASE EVENT DATE: 20190917
